FAERS Safety Report 6019781-9 (Version None)
Quarter: 2008Q4

REPORT INFORMATION
  Report Type: 
  Country: None (occurrence: None)
  Receive Date: 20081224
  Receipt Date: 20081218
  Transmission Date: 20090506
  Serious: Yes (Other)
  Sender: FDA-Public Use
  Company Number: NL-GENENTECH-274300

PATIENT
  Age: 83 Year

DRUGS (1)
  1. BEVACIZUMAB [Suspect]
     Indication: MACULAR DEGENERATION

REACTIONS (1)
  - CEREBROVASCULAR ACCIDENT [None]
